FAERS Safety Report 11096393 (Version 2)
Quarter: 2015Q2

REPORT INFORMATION
  Report Type: Spontaneous
  Country: CO (occurrence: CO)
  Receive Date: 20150507
  Receipt Date: 20150605
  Transmission Date: 20150821
  Serious: Yes (Hospitalization)
  Sender: FDA-Public Use
  Company Number: CO-JNJFOC-20150424254

PATIENT
  Age: 65 Year
  Sex: Male
  Weight: 52 kg

DRUGS (2)
  1. ZYTIGA [Suspect]
     Active Substance: ABIRATERONE ACETATE
     Indication: PROSTATE CANCER METASTATIC
     Route: 048
     Dates: start: 20150117
  2. PREDNISOLONE. [Concomitant]
     Active Substance: PREDNISOLONE
     Route: 048
     Dates: start: 20150117

REACTIONS (2)
  - Bone disorder [Recovering/Resolving]
  - Electrolyte depletion [Recovered/Resolved]

NARRATIVE: CASE EVENT DATE: 2015
